FAERS Safety Report 8443653-3 (Version None)
Quarter: 2012Q2

REPORT INFORMATION
  Report Type: 
  Country: None (occurrence: None)
  Receive Date: 20120607
  Receipt Date: 20120531
  Transmission Date: 20120825
  Serious: No
  Sender: FDA-Public Use
  Company Number: A0980136B

PATIENT
  Age: 3 Day
  Sex: Male

DRUGS (2)
  1. LAMICTAL [Suspect]
     Indication: EPILEPSY
     Dosage: UNK, TRANSPLACENTARY
     Route: 064
  2. LEVETIRACETAM [Suspect]
     Indication: EPILEPSY
     Dosage: UNK, TRANSPLACENTARY
     Route: 064

REACTIONS (4)
  - BRADYCARDIA NEONATAL [None]
  - OXYGEN SATURATION DECREASED [None]
  - MATERNAL DRUGS AFFECTING FOETUS [None]
  - EXPOSURE DURING BREAST FEEDING [None]
